FAERS Safety Report 5419282-2 (Version None)
Quarter: 2007Q3

REPORT INFORMATION
  Report Type: 
  Country: None (occurrence: None)
  Receive Date: 20070815
  Receipt Date: 20070806
  Transmission Date: 20080115
  Serious: Yes (Hospitalization)
  Sender: FDA-Public Use
  Company Number: 2007BI011209

PATIENT
  Age: 52 Year
  Sex: Female

DRUGS (1)
  1. AVONEX [Suspect]
     Indication: MULTIPLE SCLEROSIS
     Dosage: 30 UG;QW; IM
     Route: 030
     Dates: start: 20020724, end: 20070515

REACTIONS (4)
  - BLOOD COUNT ABNORMAL [None]
  - HEADACHE [None]
  - INFECTION [None]
  - INFLUENZA LIKE ILLNESS [None]
